FAERS Safety Report 11167507 (Version 1)
Quarter: 2015Q2

REPORT INFORMATION
  Report Type: Spontaneous
  Country: US (occurrence: None)
  Receive Date: 20150603
  Receipt Date: 20150603
  Transmission Date: 20150821
  Serious: Yes (Hospitalization, Other)
  Sender: FDA-Public Use
  Company Number: 2015SCAL000234

PATIENT
  Age: 25 Year
  Sex: Male

DRUGS (3)
  1. METHYLENE BLUE. [Suspect]
     Active Substance: METHYLENE BLUE
     Indication: PRODUCT USED FOR UNKNOWN INDICATION
     Route: 042
  2. FLUOXETINE HYDROCHLORIDE. [Suspect]
     Active Substance: FLUOXETINE HYDROCHLORIDE
     Indication: PRODUCT USED FOR UNKNOWN INDICATION
  3. SEVOFLURANE. [Concomitant]
     Active Substance: SEVOFLURANE

REACTIONS (7)
  - Pseudomonas test positive [None]
  - Drug interaction [None]
  - Hypotension [None]
  - Post procedural complication [None]
  - Serotonin syndrome [None]
  - Lactic acidosis [None]
  - Localised intraabdominal fluid collection [None]
